FAERS Safety Report 12393240 (Version 1)
Quarter: 2016Q2

REPORT INFORMATION
  Report Type: Spontaneous
  Country: US (occurrence: None)
  Receive Date: 20160520
  Receipt Date: 20160520
  Transmission Date: 20160815
  Serious: Yes (Hospitalization, Other)
  Sender: FDA-Public Use
  Company Number: None

PATIENT
  Age: 48 Year
  Sex: Female
  Weight: 86.18 kg

DRUGS (4)
  1. IRON [Concomitant]
     Active Substance: IRON
  2. BUPROPION XL [Concomitant]
     Active Substance: BUPROPION
  3. SERTRALINE HCL, 100 MG LUPIN PHARMACEU [Suspect]
     Active Substance: SERTRALINE HYDROCHLORIDE
     Indication: DEPRESSION
     Dosage: 2 TABLET(S) IN THE MORNING TAKEN BY MOUTH
     Route: 048
     Dates: start: 20160329, end: 20160422
  4. MULTIVITAMIN [Concomitant]
     Active Substance: VITAMINS

REACTIONS (3)
  - Dizziness [None]
  - Aggression [None]
  - Confusional state [None]

NARRATIVE: CASE EVENT DATE: 20160421
